FAERS Safety Report 8676279 (Version 2)
Quarter: 2013Q2

REPORT INFORMATION
  Report Type: Report from Study
  Country: US (occurrence: US)
  Receive Date: 20120720
  Receipt Date: 20130620
  Transmission Date: 20140414
  Serious: Yes (Death)
  Sender: FDA-Public Use
  Company Number: US-ELI_LILLY_AND_COMPANY-US201207006109

PATIENT
  Age: 66 Year
  Sex: Female

DRUGS (21)
  1. TERIPARATIDE [Suspect]
     Indication: OSTEOPOROSIS
     Dosage: 20 UG, QD
     Route: 058
     Dates: start: 201203, end: 201207
  2. TERIPARATIDE [Suspect]
     Indication: SPINAL COMPRESSION FRACTURE
  3. CALCIUM [Concomitant]
  4. VITAMIN D3 [Concomitant]
  5. SINGULAIR [Concomitant]
  6. CELEXA [Concomitant]
  7. BUSPAR [Concomitant]
  8. FENTANYL [Concomitant]
  9. OXYCODONE [Concomitant]
  10. ALBUTEROL                          /00139501/ [Concomitant]
  11. ADDERALL [Concomitant]
  12. DICLOFENAC [Concomitant]
  13. PROAIR                             /00972202/ [Concomitant]
  14. PULMICORT [Concomitant]
  15. TRAZODONE [Concomitant]
  16. PREVACID [Concomitant]
  17. NEURONTIN [Concomitant]
  18. LIDODERM [Concomitant]
  19. PREDNISONE [Concomitant]
  20. PROTONIX [Concomitant]
  21. VITAMIN B COMPLEX [Concomitant]

REACTIONS (2)
  - Chronic obstructive pulmonary disease [Fatal]
  - Pneumonia aspiration [Fatal]
